FAERS Safety Report 12822543 (Version 1)
Quarter: 2016Q4

REPORT INFORMATION
  Report Type: Spontaneous
  Country: US (occurrence: US)
  Receive Date: 20161006
  Receipt Date: 20161006
  Transmission Date: 20170207
  Serious: No
  Sender: FDA-Public Use
  Company Number: US-SHIONOGI, INC-2016000820

PATIENT
  Age: 51 Year
  Sex: Female

DRUGS (9)
  1. OSPHENA [Suspect]
     Active Substance: OSPEMIFENE
     Indication: OFF LABEL USE
  2. PREDNISONE. [Suspect]
     Active Substance: PREDNISONE
     Indication: BACK INJURY
  3. BENADRYL [Concomitant]
     Active Substance: DIPHENHYDRAMINE HYDROCHLORIDE
     Indication: HYPERSENSITIVITY
     Dosage: UNK
     Route: 065
  4. OSPHENA [Suspect]
     Active Substance: OSPEMIFENE
     Indication: VULVOVAGINAL DRYNESS
     Dosage: 60 MG, QD
     Route: 065
     Dates: start: 20160809
  5. PREDNISONE. [Suspect]
     Active Substance: PREDNISONE
     Indication: ARTHRITIS
     Dosage: 20 MG, UNK
     Route: 065
     Dates: end: 20160821
  6. AMLODIPINE BENAZEPRIL [Concomitant]
     Active Substance: AMLODIPINE BESYLATE\BENAZEPRIL HYDROCHLORIDE
     Indication: HYPERTENSION
     Dosage: UNK
     Route: 065
  7. OSPHENA [Suspect]
     Active Substance: OSPEMIFENE
     Indication: MENOPAUSE
  8. AMBIEN [Concomitant]
     Active Substance: ZOLPIDEM TARTRATE
     Indication: PRODUCT USED FOR UNKNOWN INDICATION
     Dosage: UNK
     Route: 065
  9. PERCOCET [Concomitant]
     Active Substance: ACETAMINOPHEN\OXYCODONE HYDROCHLORIDE
     Indication: ARTHRITIS
     Dosage: UNK
     Route: 065

REACTIONS (7)
  - Nausea [Not Recovered/Not Resolved]
  - Hot flush [Not Recovered/Not Resolved]
  - Irritability [Not Recovered/Not Resolved]
  - Headache [Recovered/Resolved]
  - Somnolence [Unknown]
  - Muscle spasms [Not Recovered/Not Resolved]
  - Off label use [Unknown]

NARRATIVE: CASE EVENT DATE: 201608
